FAERS Safety Report 5698265-1 (Version None)
Quarter: 2008Q2

REPORT INFORMATION
  Report Type: 
  Country: None (occurrence: None)
  Receive Date: 20080408
  Receipt Date: 20080327
  Transmission Date: 20081010
  Serious: Yes (Other)
  Sender: FDA-Public Use
  Company Number: GB-PFIZER INC-2008027631

PATIENT
  Age: 42 Year
  Sex: Male
  Weight: 82.6 kg

DRUGS (3)
  1. CHAMPIX [Suspect]
     Indication: SMOKING CESSATION THERAPY
     Route: 048
     Dates: start: 20070706, end: 20080128
  2. CO-CODAMOL [Concomitant]
     Indication: SCIATICA
     Route: 048
  3. IBUPROFEN [Concomitant]
     Indication: SCIATICA
     Route: 048

REACTIONS (2)
  - ANGER [None]
  - PSYCHOMOTOR HYPERACTIVITY [None]
